FAERS Safety Report 5640521-7 (Version None)
Quarter: 2008Q1

REPORT INFORMATION
  Report Type: 
  Country: None (occurrence: None)
  Receive Date: 20080225
  Receipt Date: 20080215
  Transmission Date: 20080703
  Serious: Yes (Hospitalization)
  Sender: FDA-Public Use
  Company Number: 100#08#2008-00721

PATIENT
  Age: 32 Year
  Sex: Male

DRUGS (1)
  1. PHEYNTOIN (PHENYTOIN) [Suspect]
     Indication: EPILEPSY
     Dosage: 100 MG EVERY 8 HOURS; APPROX. 4 MONTHS

REACTIONS (12)
  - BLOOD GLUCOSE ABNORMAL [None]
  - DIARRHOEA [None]
  - GAMMA-GLUTAMYLTRANSFERASE INCREASED [None]
  - HYPOGAMMAGLOBULINAEMIA [None]
  - IMMUNODEFICIENCY COMMON VARIABLE [None]
  - MUCOSAL INFECTION [None]
  - NEUTROPENIA [None]
  - PYREXIA [None]
  - RHINORRHOEA [None]
  - SINUSITIS [None]
  - TRACHEOBRONCHITIS [None]
  - WEIGHT DECREASED [None]
